FAERS Safety Report 22064551 (Version 1)
Quarter: 2023Q1

REPORT INFORMATION
  Report Type: Spontaneous
  Country: US (occurrence: US)
  Receive Date: 20230306
  Receipt Date: 20230306
  Transmission Date: 20230417
  Serious: No
  Sender: FDA-Public Use
  Company Number: US-PTC THERAPEUTICS INC.-US-2022PTC001309

PATIENT
  Sex: Male

DRUGS (1)
  1. EMFLAZA [Suspect]
     Active Substance: DEFLAZACORT
     Indication: Product used for unknown indication
     Dosage: 18 MG AND ONE HALF 6 MG  DAILY
     Route: 048

REACTIONS (1)
  - Off label use [Unknown]
